FAERS Safety Report 5584078-8 (Version None)
Quarter: 2008Q1

REPORT INFORMATION
  Report Type: 
  Country: None (occurrence: None)
  Receive Date: 20080104
  Receipt Date: 20080104
  Transmission Date: 20080703
  Serious: Yes (Hospitalization)
  Sender: FDA-Public Use
  Company Number: None

PATIENT
  Sex: Female
  Weight: 122.4712 kg

DRUGS (17)
  1. ALTACE [Suspect]
     Indication: CARDIAC FAILURE CONGESTIVE
     Dosage: 10MG QD PO PT STATES TAKING FOR LONGTIME
     Route: 048
  2. ALTACE [Suspect]
     Indication: HYPERTENSION
     Dosage: 10MG QD PO PT STATES TAKING FOR LONGTIME
     Route: 048
  3. BABY ASP [Concomitant]
  4. AMARYL [Concomitant]
  5. THEOPHYLLINE [Concomitant]
  6. VERELAN [Concomitant]
  7. LANTUS [Concomitant]
  8. LIPITOR [Concomitant]
  9. JANUVIA [Concomitant]
  10. EFFEXOR [Concomitant]
  11. ZETIA [Concomitant]
  12. WELLBUTRIN XL [Concomitant]
  13. NEXIUM [Concomitant]
  14. ALBUTEROL [Concomitant]
  15. LEVOXYL [Concomitant]
  16. FUROSEMIDE [Concomitant]
  17. ALPRAZOLAM [Concomitant]

REACTIONS (4)
  - CHEST DISCOMFORT [None]
  - DYSPHAGIA [None]
  - PRURITUS [None]
  - THROAT TIGHTNESS [None]
